FAERS Safety Report 6055010-8 (Version None)
Quarter: 2009Q1

REPORT INFORMATION
  Report Type: 
  Country: None (occurrence: None)
  Receive Date: 20090122
  Receipt Date: 20090108
  Transmission Date: 20090719
  Serious: Yes (Other)
  Sender: FDA-Public Use
  Company Number: SPV1-2009-00058

PATIENT
  Age: 16 Year
  Sex: Male
  Weight: 22 kg

DRUGS (4)
  1. ELAPRASE [Suspect]
     Indication: MUCOPOLYSACCHARIDOSIS II
     Dosage: 11.2 MG, 1X/WEEK, IV DRIP
     Route: 041
     Dates: start: 20071204
  2. ELAPRASE [Suspect]
  3. ELAPRASE [Suspect]
  4. CHLORPHENIRAMINE MALEATE (CHLORPHENIRAMINE MALEATE) [Concomitant]

REACTIONS (6)
  - BRAIN STEM AUDITORY EVOKED RESPONSE ABNORMAL [None]
  - BRONCHITIS [None]
  - EPILEPSY [None]
  - PULMONARY VALVE INCOMPETENCE [None]
  - TRICUSPID VALVE INCOMPETENCE [None]
  - URTICARIA [None]
